FAERS Safety Report 5322104-1 (Version None)
Quarter: 2007Q2

REPORT INFORMATION
  Report Type: 
  Country: None (occurrence: None)
  Receive Date: 20070222
  Receipt Date: 20060103
  Transmission Date: 20071010
  Serious: Yes (Disabling)
  Sender: FDA-Public Use
  Company Number: HQWYE792601DEC05

PATIENT
  Sex: Female

DRUGS (2)
  1. EFFEXOR [Suspect]
  2. NEULACTIL (PERICIAZINE) [Suspect]

REACTIONS (1)
  - TORTICOLLIS [None]
